FAERS Safety Report 5064733-9 (Version None)
Quarter: 2006Q3

REPORT INFORMATION
  Report Type: 
  Country: None (occurrence: None)
  Receive Date: 20060728
  Receipt Date: 20060724
  Transmission Date: 20061208
  Serious: Yes (Other)
  Sender: FDA-Public Use
  Company Number: GB-SANOFI-SYNTHELABO-A01200605858

PATIENT
  Age: 65 Year
  Sex: Female
  Weight: 85.1 kg

DRUGS (1)
  1. ELOXATIN [Suspect]
     Indication: COLORECTAL CANCER
     Route: 041
     Dates: start: 20060525, end: 20060525

REACTIONS (4)
  - FEELING ABNORMAL [None]
  - LARYNGOSPASM [None]
  - NEUROPATHY PERIPHERAL [None]
  - TREMOR [None]
